FAERS Safety Report 9001036 (Version 1)
Quarter: 2013Q1

REPORT INFORMATION
  Report Type: Spontaneous
  Country: US (occurrence: None)
  Receive Date: 20130103
  Receipt Date: 20130103
  Transmission Date: 20140127
  Serious: Yes (Hospitalization)
  Sender: FDA-Public Use
  Company Number: None

PATIENT
  Age: 66 Year
  Sex: Female

DRUGS (2)
  1. VOTRIENT [Suspect]
     Route: 048
     Dates: start: 20121102
  2. VOTRIENT [Suspect]
     Route: 048
     Dates: start: 20121102

REACTIONS (4)
  - Drug ineffective [None]
  - Hepatic enzyme increased [None]
  - Hypertension [None]
  - Gallbladder enlargement [None]
